FAERS Safety Report 8249656-6 (Version None)
Quarter: 2012Q2

REPORT INFORMATION
  Report Type: 
  Country: None (occurrence: None)
  Receive Date: 20120402
  Receipt Date: 20120323
  Transmission Date: 20120825
  Serious: Yes (Hospitalization)
  Sender: FDA-Public Use
  Company Number: US-BAYER-201033149NA

PATIENT
  Age: 29 Year
  Sex: Female
  Weight: 108.84 kg

DRUGS (6)
  1. PROMETHEGAN [Concomitant]
     Indication: VOMITING
  2. MINOCYCLINE HCL [Concomitant]
     Dosage: 100 MG, UNK
     Dates: start: 20081104, end: 20090428
  3. DROSPIRENONE AND ETHINYL ESTRADIOL [Suspect]
     Indication: ACNE
     Dosage: UNK
     Route: 048
     Dates: start: 20060101, end: 20070101
  4. MULTI-VITAMINS [Concomitant]
     Indication: MEDICAL DIET
     Route: 048
  5. DROSPIRENONE AND ETHINYL ESTRADIOL [Suspect]
     Indication: POLYCYSTIC OVARIES
     Dosage: UNK
     Dates: start: 20081101
  6. PROMETHEGAN [Concomitant]
     Indication: NAUSEA
     Dosage: 25 MG, TID

REACTIONS (5)
  - CHOLECYSTITIS ACUTE [None]
  - CHOLECYSTITIS INFECTIVE [None]
  - VOMITING [None]
  - ABDOMINAL PAIN [None]
  - STRESS [None]
